FAERS Safety Report 19607057 (Version 2)
Quarter: 2021Q3

REPORT INFORMATION
  Report Type: Spontaneous
  Country: US (occurrence: US)
  Receive Date: 20210726
  Receipt Date: 20210730
  Transmission Date: 20211014
  Serious: Yes (Death, Life-Threatening, Other)
  Sender: FDA-Public Use
  Company Number: US-CELLTRION INC.-2021US009841

PATIENT

DRUGS (4)
  1. TRASTUZUMAB (UNKNOWN) [Suspect]
     Active Substance: TRASTUZUMAB
     Indication: MUCOEPIDERMOID CARCINOMA
  2. TRASTUZUMAB EMTANSINE [Suspect]
     Active Substance: ADO-TRASTUZUMAB EMTANSINE
     Indication: MUCOEPIDERMOID CARCINOMA
     Dosage: ON A COMPASSIONATE BASIS; 11 DOSES (STOP DATE: JUL 2019)
  3. PERTUZUMAB. [Suspect]
     Active Substance: PERTUZUMAB
     Indication: MUCOEPIDERMOID CARCINOMA
  4. HERCEPTIN [Suspect]
     Active Substance: TRASTUZUMAB
     Indication: MUCOEPIDERMOID CARCINOMA

REACTIONS (9)
  - Death [Fatal]
  - Drug effective for unapproved indication [Unknown]
  - Metastases to central nervous system [Unknown]
  - Metastases to bone [Unknown]
  - Disease progression [Unknown]
  - Musculoskeletal chest pain [Recovered/Resolved]
  - Off label use [Unknown]
  - Pleural effusion [Recovered/Resolved]
  - Drug-induced liver injury [Unknown]

NARRATIVE: CASE EVENT DATE: 201806
